FAERS Safety Report 14443460 (Version 2)
Quarter: 2018Q3

REPORT INFORMATION
  Report Type: Report from Study
  Country: US (occurrence: US)
  Receive Date: 20180125
  Receipt Date: 20180724
  Transmission Date: 20181010
  Serious: No
  Sender: FDA-Public Use
  Company Number: US-AMGEN-USASL2017134487

PATIENT
  Age: 57 Year
  Sex: Female

DRUGS (2)
  1. KYPROLIS [Suspect]
     Active Substance: CARFILZOMIB
     Indication: PLASMA CELL MYELOMA
     Dosage: UNK
     Route: 065
  2. KYPROLIS [Suspect]
     Active Substance: CARFILZOMIB
     Dosage: UNK
     Route: 065

REACTIONS (5)
  - Adverse event [Recovering/Resolving]
  - Malaise [Not Recovered/Not Resolved]
  - Dyspnoea [Unknown]
  - Cardiac disorder [Unknown]
  - Cerebral disorder [Recovering/Resolving]

NARRATIVE: CASE EVENT DATE: 2017
